FAERS Safety Report 20758865 (Version 2)
Quarter: 2022Q2

REPORT INFORMATION
  Report Type: Spontaneous
  Country: US (occurrence: US)
  Receive Date: 20220427
  Receipt Date: 20220518
  Transmission Date: 20220721
  Serious: No
  Sender: FDA-Public Use
  Company Number: US-BRISTOL-MYERS SQUIBB COMPANY-2022-021835

PATIENT
  Age: 79 Year
  Sex: Female
  Weight: 51.26 kg

DRUGS (1)
  1. REVLIMID [Suspect]
     Active Substance: LENALIDOMIDE
     Indication: Lymphoma
     Dosage: 21 DAYS ON 7 DAYS OFF
     Route: 048
     Dates: start: 20220127, end: 20220406

REACTIONS (3)
  - Fatigue [Recovering/Resolving]
  - Headache [Unknown]
  - No adverse event [Unknown]
